FAERS Safety Report 14828503 (Version 1)
Quarter: 2018Q2

REPORT INFORMATION
  Report Type: Spontaneous
  Country: US (occurrence: US)
  Receive Date: 20180430
  Receipt Date: 20180430
  Transmission Date: 20180711
  Serious: Yes (Other)
  Sender: FDA-Public Use
  Company Number: US-REGENERON PHARMACEUTICALS, INC.-2018-21872

PATIENT

DRUGS (2)
  1. EYLEA [Suspect]
     Active Substance: AFLIBERCEPT
     Indication: PRODUCT USED FOR UNKNOWN INDICATION
     Dosage: INITIAL DOSING
  2. EYLEA [Suspect]
     Active Substance: AFLIBERCEPT
     Dosage: RESTARTED DOSING

REACTIONS (2)
  - Drug ineffective [Unknown]
  - Dementia [Unknown]
